FAERS Safety Report 16086810 (Version 1)
Quarter: 2019Q1

REPORT INFORMATION
  Report Type: Report from Study
  Country: BR (occurrence: BR)
  Receive Date: 20190318
  Receipt Date: 20190318
  Transmission Date: 20190418
  Serious: Yes (Hospitalization, Other)
  Sender: FDA-Public Use
  Company Number: PHHY2017BR063584

PATIENT
  Sex: Female
  Weight: 70 kg

DRUGS (5)
  1. CITALOPRAM [Concomitant]
     Active Substance: CITALOPRAM HYDROBROMIDE
     Indication: MENTAL DISORDER
     Dosage: 1 DF, QD (FOR 6 YEARS)
     Route: 065
  2. ACLASTA [Suspect]
     Active Substance: ZOLEDRONIC ACID
     Dosage: 1 DF, Q12MO
     Route: 042
     Dates: start: 2015, end: 2015
  3. ACLASTA [Suspect]
     Active Substance: ZOLEDRONIC ACID
     Dosage: 1 DF, Q12MO
     Route: 042
     Dates: start: 2013, end: 2015
  4. TRYPTANOL [Concomitant]
     Active Substance: AMITRIPTYLINE
     Indication: MENTAL DISORDER
     Dosage: 1 DF, PRN (FOR A LONG TIME)
     Route: 065
  5. ACLASTA [Suspect]
     Active Substance: ZOLEDRONIC ACID
     Indication: OSTEOPOROSIS
     Dosage: 1 DF, Q12MO
     Route: 042
     Dates: start: 2012

REACTIONS (20)
  - Arrhythmia [Recovered/Resolved]
  - Balance disorder [Unknown]
  - Head injury [Unknown]
  - Drug ineffective [Unknown]
  - Fall [Recovered/Resolved]
  - Weight increased [Not Recovered/Not Resolved]
  - Arthralgia [Unknown]
  - Hypoaesthesia [Unknown]
  - Bacterial infection [Recovered/Resolved]
  - Malaise [Unknown]
  - Localised infection [Recovered/Resolved]
  - Fatigue [Recovered/Resolved]
  - Limb injury [Unknown]
  - Pain in extremity [Recovering/Resolving]
  - Limb discomfort [Unknown]
  - Nodule [Unknown]
  - Hypoacusis [Not Recovered/Not Resolved]
  - Bone density decreased [Unknown]
  - American trypanosomiasis [Not Recovered/Not Resolved]
  - Dyspnoea [Recovered/Resolved]
